FAERS Safety Report 10476474 (Version 3)
Quarter: 2015Q1

REPORT INFORMATION
  Report Type: Spontaneous
  Country: US (occurrence: US)
  Receive Date: 20140925
  Receipt Date: 20150224
  Transmission Date: 20150720
  Serious: Yes (Hospitalization, Other)
  Sender: FDA-Public Use
  Company Number: US-GLAXOSMITHKLINE-A1090926A

PATIENT
  Age: 50 Year
  Sex: Female

DRUGS (3)
  1. FLOLAN [Suspect]
     Active Substance: EPOPROSTENOL SODIUM
     Dosage: 100NG/KG/MIN, 150,000 CONC, 86ML/DAY
     Route: 042
  2. COUMADIN [Concomitant]
     Active Substance: WARFARIN SODIUM
  3. FLOLAN [Suspect]
     Active Substance: EPOPROSTENOL SODIUM
     Indication: PULMONARY ARTERIAL HYPERTENSION
     Dosage: 97 NG/KG/MIN, CONCENTRATION: 135000 NG/ML, PUMP RATE:93ML/DAY
     Route: 042
     Dates: start: 19970828

REACTIONS (6)
  - Infection [Unknown]
  - Cardiac failure congestive [Unknown]
  - Central venous catheterisation [Unknown]
  - Adverse event [Unknown]
  - Dyspnoea [Unknown]
  - Medical device complication [Unknown]

NARRATIVE: CASE EVENT DATE: 20140914
